FAERS Safety Report 10644763 (Version 1)
Quarter: 2014Q4

REPORT INFORMATION
  Report Type: Report from Study
  Country: AU (occurrence: AU)
  Receive Date: 20141211
  Receipt Date: 20141211
  Transmission Date: 20150529
  Serious: Yes (Other)
  Sender: FDA-Public Use
  Company Number: AU-ROCHE-1505637

PATIENT
  Sex: Female

DRUGS (1)
  1. ACTEMRA [Suspect]
     Active Substance: TOCILIZUMAB
     Indication: RHEUMATOID ARTHRITIS
     Route: 042
     Dates: start: 20100311

REACTIONS (6)
  - Nausea [Unknown]
  - Pigmentation disorder [Unknown]
  - Headache [Unknown]
  - Demyelination [Unknown]
  - Multiple sclerosis [Unknown]
  - Vomiting [Unknown]
